FAERS Safety Report 13348848 (Version 1)
Quarter: 2017Q1

REPORT INFORMATION
  Report Type: Spontaneous
  Country: US (occurrence: US)
  Receive Date: 20170320
  Receipt Date: 20170320
  Transmission Date: 20170428
  Serious: No
  Sender: FDA-Public Use
  Company Number: US-TEVA-698272USA

PATIENT
  Sex: Male
  Weight: 70.37 kg

DRUGS (2)
  1. ESCITALOPRAM [Suspect]
     Active Substance: ESCITALOPRAM OXALATE
     Indication: ANXIETY
     Dates: start: 20160822
  2. ESCITALOPRAM [Suspect]
     Active Substance: ESCITALOPRAM OXALATE
     Indication: TREMOR

REACTIONS (4)
  - Drug effect incomplete [Unknown]
  - Dysstasia [Unknown]
  - Dysgraphia [Not Recovered/Not Resolved]
  - Product use issue [Unknown]
